FAERS Safety Report 20847654 (Version 3)
Quarter: 2022Q4

REPORT INFORMATION
  Report Type: Report from Study
  Country: CO (occurrence: CO)
  Receive Date: 20220519
  Receipt Date: 20221129
  Transmission Date: 20230112
  Serious: Yes (Life-Threatening, Hospitalization, Other)
  Sender: FDA-Public Use
  Company Number: CO-ABBVIE-22K-036-4400111-00

PATIENT
  Sex: Male
  Weight: 74 kg

DRUGS (10)
  1. HUMIRA [Suspect]
     Active Substance: ADALIMUMAB
     Indication: Crohn^s disease
     Dosage: FORM STRENGTH: 40 MG
     Route: 058
     Dates: start: 20180307, end: 2022
  2. HUMIRA [Suspect]
     Active Substance: ADALIMUMAB
     Dosage: FORM STRENGTH: 40 MG
     Route: 058
     Dates: start: 2022
  3. SALINE [Concomitant]
     Active Substance: SODIUM CHLORIDE
     Indication: Product used for unknown indication
  4. IRON [Concomitant]
     Active Substance: IRON
     Indication: Iron deficiency
     Dosage: ONLY 2 BAGS
     Route: 042
     Dates: start: 2022, end: 2022
  5. IRON [Concomitant]
     Active Substance: IRON
     Indication: Iron deficiency
     Dosage: TIME INTERVAL: 1 TOTAL: 1 BAG
     Route: 042
     Dates: start: 20220717, end: 20220717
  6. LOSARTAN [Concomitant]
     Active Substance: LOSARTAN
     Indication: Hypertension
     Dosage: 50 MILLIGRAM
     Route: 048
     Dates: start: 2022
  7. LOSARTAN [Concomitant]
     Active Substance: LOSARTAN
     Indication: Hypertension
     Route: 048
  8. LOSARTAN [Concomitant]
     Active Substance: LOSARTAN
     Indication: Hypertension
     Route: 048
     Dates: start: 20220818
  9. LEVOTHYROXINE [Concomitant]
     Active Substance: LEVOTHYROXINE
     Indication: Hypothyroidism
     Dosage: FORM STRENGTH: 100 MG/6 TO 10 YEARS AGO
     Route: 048
     Dates: start: 2022, end: 2022
  10. LEVOTHYROXINE [Concomitant]
     Active Substance: LEVOTHYROXINE
     Indication: Hypothyroidism
     Dosage: FORM STRENGTH: 75 MG
     Route: 048

REACTIONS (32)
  - Cerebral ischaemia [Recovering/Resolving]
  - Peroneal nerve palsy [Not Recovered/Not Resolved]
  - Memory impairment [Not Recovered/Not Resolved]
  - Faecal calprotectin abnormal [Not Recovered/Not Resolved]
  - Cerebral disorder [Recovering/Resolving]
  - Iron deficiency [Recovering/Resolving]
  - Eye colour change [Recovering/Resolving]
  - Deafness [Not Recovered/Not Resolved]
  - Discouragement [Recovering/Resolving]
  - Hospitalisation [Unknown]
  - Constipation [Recovering/Resolving]
  - Hypothyroidism [Not Recovered/Not Resolved]
  - Decreased appetite [Recovering/Resolving]
  - Weight decreased [Not Recovered/Not Resolved]
  - Balance disorder [Recovering/Resolving]
  - Taste disorder [Recovering/Resolving]
  - Laboratory test abnormal [Not Recovered/Not Resolved]
  - Anosmia [Recovering/Resolving]
  - Thyroid disorder [Recovering/Resolving]
  - Mobility decreased [Recovering/Resolving]
  - Muscular weakness [Recovering/Resolving]
  - Constipation [Recovered/Resolved]
  - Hypotension [Recovering/Resolving]
  - Listless [Unknown]
  - Illness [Recovering/Resolving]
  - Abdominal discomfort [Not Recovered/Not Resolved]
  - Vomiting [Recovered/Resolved]
  - Dehydration [Unknown]
  - Feeling cold [Recovering/Resolving]
  - Diarrhoea [Recovered/Resolved]
  - Hypertension [Recovered/Resolved]
  - Infrequent bowel movements [Unknown]

NARRATIVE: CASE EVENT DATE: 20180101
